FAERS Safety Report 24360025 (Version 1)
Quarter: 2024Q3

REPORT INFORMATION
  Report Type: Other
  Country: CN (occurrence: CN)
  Receive Date: 20240925
  Receipt Date: 20240925
  Transmission Date: 20241016
  Serious: Yes (Hospitalization, Other)
  Sender: BIONPHARMA
  Company Number: CN-Bion-013873

PATIENT
  Sex: Female

DRUGS (2)
  1. DEXAMETHASONE [Suspect]
     Active Substance: DEXAMETHASONE
     Indication: Maternal therapy to enhance foetal lung maturity
  2. PROGESTERONE [Suspect]
     Active Substance: PROGESTERONE
     Indication: Vaginal haemorrhage
     Route: 067

REACTIONS (4)
  - Foetal exposure during pregnancy [Unknown]
  - Neonatal respiratory distress [Recovered/Resolved]
  - Neonatal pneumonia [Recovered/Resolved]
  - Neonatal asphyxia [Recovered/Resolved]
